FAERS Safety Report 4674540-4 (Version None)
Quarter: 2005Q2

REPORT INFORMATION
  Report Type: 
  Country: None (occurrence: None)
  Receive Date: 20050526
  Receipt Date: 20050118
  Transmission Date: 20051028
  Serious: Yes (Hospitalization, Other)
  Sender: FDA-Public Use
  Company Number: PHRM2005FR00570

PATIENT
  Age: 43 Year
  Sex: Female
  Weight: 97 kg

DRUGS (2)
  1. ZOMETA [Suspect]
     Indication: METASTASIS
     Dosage: 4 MG, QMO
     Route: 042
     Dates: start: 20030114
  2. HERCEPTIN [Concomitant]
     Indication: METASTASIS
     Dosage: 6 MG/KG/21 DAYS

REACTIONS (3)
  - ASEPTIC NECROSIS BONE [None]
  - BONE DEBRIDEMENT [None]
  - OSTEONECROSIS [None]
